FAERS Safety Report 5802005-2 (Version None)
Quarter: 2008Q3

REPORT INFORMATION
  Report Type: 
  Country: None (occurrence: None)
  Receive Date: 20080707
  Receipt Date: 20080625
  Transmission Date: 20090109
  Serious: Yes (Other)
  Sender: FDA-Public Use
  Company Number: IN-PFIZER INC-2008054571

PATIENT
  Sex: Female

DRUGS (1)
  1. TRANEXAMIC ACID (IV) [Suspect]
     Indication: HAEMORRHAGE PROPHYLAXIS
     Route: 042
     Dates: start: 20080612, end: 20080612

REACTIONS (2)
  - THROMBOSIS [None]
  - WOUND SECRETION [None]
